FAERS Safety Report 6544177-0 (Version None)
Quarter: 2010Q1

REPORT INFORMATION
  Report Type: 
  Country: None (occurrence: None)
  Receive Date: 20100119
  Receipt Date: 20100119
  Transmission Date: 20100710
  Serious: No
  Sender: FDA-Public Use
  Company Number: None

PATIENT
  Age: 45 Year
  Sex: Male
  Weight: 83.9154 kg

DRUGS (1)
  1. ZICAM COLD REMEDY NASAL GEL UNSURE UNSURE [Suspect]
     Indication: NASOPHARYNGITIS

REACTIONS (2)
  - ANOSMIA [None]
  - HYPOSMIA [None]
